FAERS Safety Report 18065061 (Version 1)
Quarter: 2020Q3

REPORT INFORMATION
  Report Type: Spontaneous
  Country: PT (occurrence: PT)
  Receive Date: 20200724
  Receipt Date: 20200724
  Transmission Date: 20201103
  Serious: Yes (Other)
  Sender: FDA-Public Use
  Company Number: PT-TEVA-2020-PT-1804587

PATIENT
  Age: 35 Year
  Sex: Female

DRUGS (11)
  1. FOLINIC ACID [Suspect]
     Active Substance: LEUCOVORIN
     Indication: ACUTE LEUKAEMIA
     Dosage: DOSAGE FORM: UNSPECIFIED
     Route: 065
  2. MESNA. [Suspect]
     Active Substance: MESNA
     Indication: ACUTE LEUKAEMIA
     Dosage: 600 MG/M2, CYCLIC (DAYS 1 TO 3), UNIT DOSE: 600 MG/M2,
     Route: 065
     Dates: start: 201305, end: 201311
  3. CYCLOPHOSPHAMIDE. [Suspect]
     Active Substance: CYCLOPHOSPHAMIDE
     Indication: ACUTE LEUKAEMIA
     Dosage: 300 MG/M2, CYCLICAL (12/12H, DAYS 1 TO 3 2 IN 1 D), UNIT DOSE: 300 MG/M2
     Route: 065
     Dates: start: 201305, end: 201311
  4. DEXAMETHASONE. [Suspect]
     Active Substance: DEXAMETHASONE
     Indication: ACUTE LEUKAEMIA
     Dosage: 40 MG, CYCLIC (DAYS 1 TO 4 AND DAYS 11 TO 14), UNIT DOSE: 40 MG
     Route: 065
     Dates: start: 201305, end: 201311
  5. METHOTREXATE SODIUM. [Suspect]
     Active Substance: METHOTREXATE SODIUM
     Indication: ACUTE LEUKAEMIA
     Dosage: 12 MG, DAY 2, UNIT DOSE: 12 MG
     Route: 037
     Dates: start: 201305, end: 201311
  6. METHYLPREDNISOLONE. [Suspect]
     Active Substance: METHYLPREDNISOLONE
     Indication: ACUTE LEUKAEMIA
     Dosage: DOSAGE FORM: UNSPECIFIED
     Route: 065
  7. METHOTREXATE SODIUM. [Suspect]
     Active Substance: METHOTREXATE SODIUM
     Dosage: 1000 MG/M2, CYCLIC (DAY 1), UNIT DOSE: 1000 MG
     Route: 065
     Dates: start: 201305, end: 201311
  8. CYTARABINE. [Suspect]
     Active Substance: CYTARABINE
     Indication: ACUTE LEUKAEMIA
     Dosage: 3000 MG/M2, CYCLICAL (12/12H, DAYS 2 AND 3), UNIT DOSE: 3000 MG/M2
     Route: 065
     Dates: start: 201305, end: 201311
  9. CYTARABINE. [Suspect]
     Active Substance: CYTARABINE
     Dosage: 100 MG, CYCLIC, DAYS 7 OR 8, UNIT DOSE: 100 MG
     Route: 037
     Dates: start: 201305, end: 201311
  10. DOXORUBICIN [Suspect]
     Active Substance: DOXORUBICIN
     Indication: ACUTE LEUKAEMIA
     Dosage: 50 MG/M2, CYCLICAL (DAYS 4 ), UNIT DOSE: 50 MG/M2
     Route: 065
     Dates: start: 201305, end: 201311
  11. VINCRISTINE [Suspect]
     Active Substance: VINCRISTINE
     Indication: ACUTE LEUKAEMIA
     Dosage: 2 MG, CYCLIC (DAYS 4 AND 11), UNIT DOSE: 2 MG
     Route: 065
     Dates: start: 201305, end: 201311

REACTIONS (5)
  - Febrile neutropenia [Unknown]
  - Off label use [Unknown]
  - Product use in unapproved indication [Unknown]
  - Neoplasm recurrence [Unknown]
  - Mucosal inflammation [Unknown]

NARRATIVE: CASE EVENT DATE: 2013
